FAERS Safety Report 6461075-1 (Version None)
Quarter: 2009Q4

REPORT INFORMATION
  Report Type: 
  Country: None (occurrence: None)
  Receive Date: 20091130
  Receipt Date: 20091118
  Transmission Date: 20100525
  Serious: Yes (Hospitalization)
  Sender: FDA-Public Use
  Company Number: B0606360A

PATIENT
  Age: 79 Year
  Sex: Male

DRUGS (7)
  1. PAXIL [Suspect]
     Indication: DRUG USE FOR UNKNOWN INDICATION
     Dosage: 20MG PER DAY
     Route: 048
     Dates: start: 20081001, end: 20091101
  2. TAMSULOSIN HYDROCHLORIDE [Concomitant]
     Dosage: .2MG PER DAY
  3. CANDESARTAN CILEXETIL [Concomitant]
     Dosage: 8MG PER DAY
  4. NIFEDIPINE [Concomitant]
     Dosage: 20MG PER DAY
  5. ATENOLOL [Concomitant]
     Dosage: 25MG PER DAY
  6. MAGNESIUM OXIDE [Concomitant]
     Dosage: 4TAB PER DAY
  7. SENNOSIDE [Concomitant]
     Dosage: 4TAB PER DAY

REACTIONS (1)
  - RHABDOMYOLYSIS [None]
